FAERS Safety Report 16458898 (Version 1)
Quarter: 2019Q2

REPORT INFORMATION
  Report Type: Spontaneous
  Country: US (occurrence: US)
  Receive Date: 20190620
  Receipt Date: 20190620
  Transmission Date: 20190711
  Serious: No
  Sender: FDA-Public Use
  Company Number: US-THERAPEUTICSMD-2019TMD00960

PATIENT
  Sex: Female
  Weight: 54.42 kg

DRUGS (10)
  1. IMVEXXY [Suspect]
     Active Substance: ESTRADIOL
     Indication: DYSPAREUNIA
     Dosage: 10 ?G BEFORE BED
     Route: 067
     Dates: start: 2018
  2. SERTRALINE [Concomitant]
     Active Substance: SERTRALINE HYDROCHLORIDE
  3. MAGNESIUM [Concomitant]
     Active Substance: MAGNESIUM
  4. VITAMIN B [Concomitant]
     Active Substance: VITAMIN B
  5. IMVEXXY [Suspect]
     Active Substance: ESTRADIOL
     Indication: ATROPHIC VULVOVAGINITIS
  6. CALCIUM [Concomitant]
     Active Substance: CALCIUM
  7. LEVOTHYROXINE. [Concomitant]
     Active Substance: LEVOTHYROXINE
  8. BLM FOR JOINT MOBILITY [Concomitant]
  9. VITAMIN D [Concomitant]
     Active Substance: VITAMIN D NOS
  10. OMEGA [Concomitant]
     Active Substance: CONVALLARIA MAJALIS\CRATAEGUS LAEVIGATA LEAF\PROXYPHYLLINE

REACTIONS (1)
  - Therapeutic product effect decreased [Not Recovered/Not Resolved]

NARRATIVE: CASE EVENT DATE: 2019
